FAERS Safety Report 5754840-7 (Version None)
Quarter: 2008Q2

REPORT INFORMATION
  Report Type: 
  Country: None (occurrence: None)
  Receive Date: 20080527
  Receipt Date: 20080418
  Transmission Date: 20081010
  Serious: Yes (Hospitalization)
  Sender: FDA-Public Use
  Company Number: 2008EU000895

PATIENT
  Age: 8 Month
  Sex: Female

DRUGS (4)
  1. PROGRAF [Suspect]
     Indication: LIVER TRANSPLANT
     Dosage: ORAL
     Route: 048
  2. SIMULECT [Concomitant]
  3. TICARCILLIN/CLAVULANATE POTASSIUM [Concomitant]
  4. FLUCONAZOLE [Concomitant]

REACTIONS (7)
  - ASPERGILLOSIS [None]
  - BILE DUCT OBSTRUCTION [None]
  - FALSE POSITIVE LABORATORY RESULT [None]
  - FUNGAL ENDOCARDITIS [None]
  - NO THERAPEUTIC RESPONSE [None]
  - OXYGEN SATURATION DECREASED [None]
  - PLEURAL EFFUSION [None]
